FAERS Safety Report 13639626 (Version 1)
Quarter: 2017Q2

REPORT INFORMATION
  Report Type: Spontaneous
  Country: US (occurrence: US)
  Receive Date: 20170609
  Receipt Date: 20170609
  Transmission Date: 20170830
  Serious: No
  Sender: FDA-Public Use
  Company Number: US-ROCHE-1461271

PATIENT
  Sex: Female

DRUGS (4)
  1. LIPITOR [Concomitant]
     Active Substance: ATORVASTATIN CALCIUM
     Indication: BLOOD CHOLESTEROL
  2. KLONOPIN [Suspect]
     Active Substance: CLONAZEPAM
     Indication: FACIAL NEURALGIA
     Dosage: 10 YEARS.
     Route: 065
  3. CLONAZEPAM. [Suspect]
     Active Substance: CLONAZEPAM
     Indication: FACIAL NEURALGIA
     Route: 065
  4. NEURONTIN [Concomitant]
     Active Substance: GABAPENTIN
     Indication: DENTAL CARE
     Dosage: AS REQUIRED.
     Route: 065

REACTIONS (4)
  - Pain [Recovered/Resolved]
  - Toothache [Recovered/Resolved]
  - Eye pain [Recovered/Resolved]
  - Oral pain [Recovered/Resolved]
